FAERS Safety Report 10932040 (Version 4)
Quarter: 2016Q2

REPORT INFORMATION
  Report Type: Spontaneous
  Country: US (occurrence: US)
  Receive Date: 20150319
  Receipt Date: 20160518
  Transmission Date: 20160815
  Serious: Yes (Death, Congenital Anomaly, Other)
  Sender: FDA-Public Use
  Company Number: US-ELI_LILLY_AND_COMPANY-US201503006033

PATIENT
  Age: 8 Day

DRUGS (1)
  1. PROZAC [Suspect]
     Active Substance: FLUOXETINE HYDROCHLORIDE
     Indication: PRODUCT USED FOR UNKNOWN INDICATION
     Dosage: UNK, UNKNOWN
     Route: 065

REACTIONS (19)
  - Late metabolic acidosis of newborn [Unknown]
  - Respiratory disorder neonatal [Unknown]
  - Jaundice neonatal [Unknown]
  - Neonatal respiratory distress syndrome [Unknown]
  - Premature baby [Unknown]
  - Renal disorder [Unknown]
  - Cardiac disorder [Fatal]
  - Neonatal infection [Unknown]
  - Atrial septal defect [Unknown]
  - Talipes [Unknown]
  - Seizure [Unknown]
  - Respiratory failure [Fatal]
  - Atelectasis neonatal [Unknown]
  - Sepsis [Unknown]
  - Exposure during pregnancy [Unknown]
  - Congenital anomaly [Unknown]
  - Patent ductus arteriosus [Unknown]
  - Emphysema [Unknown]
  - Pulmonary malformation [Unknown]

NARRATIVE: CASE EVENT DATE: 20020307
